FAERS Safety Report 5661771-X (Version None)
Quarter: 2008Q1

REPORT INFORMATION
  Report Type: 
  Country: None (occurrence: None)
  Receive Date: 20080306
  Receipt Date: 20080221
  Transmission Date: 20080703
  Serious: Yes (Death, Life-Threatening, Hospitalization, Other)
  Sender: FDA-Public Use
  Company Number: DAB-2008-00006

PATIENT
  Age: 57 Year
  Sex: Male

DRUGS (3)
  1. EPIRUBICIN HCL [Suspect]
     Dates: start: 20071221
  2. CISPLATIN [Suspect]
     Dates: start: 20071221
  3. CAPECITABINE (CAPECITABINE) [Suspect]
     Dates: start: 20071221

REACTIONS (3)
  - PANCYTOPENIA [None]
  - RENAL FAILURE [None]
  - SEPTIC SHOCK [None]
